FAERS Safety Report 6244504-8 (Version None)
Quarter: 2009Q2

REPORT INFORMATION
  Report Type: 
  Country: None (occurrence: None)
  Receive Date: 20090625
  Receipt Date: 20090616
  Transmission Date: 20091009
  Serious: Yes (Other)
  Sender: FDA-Public Use
  Company Number: US-JNJFOC-20090606182

PATIENT
  Sex: Female

DRUGS (7)
  1. RISPERDAL CONSTA [Suspect]
     Route: 030
  2. RISPERDAL CONSTA [Suspect]
     Indication: SCHIZOAFFECTIVE DISORDER
     Route: 030
  3. RISPERIDONE [Suspect]
     Indication: SCHIZOAFFECTIVE DISORDER
     Route: 048
  4. LIPITOR [Concomitant]
     Indication: BLOOD CHOLESTEROL
     Route: 065
  5. LISINOPRIL [Concomitant]
     Indication: BLOOD PRESSURE
     Route: 065
  6. METFORMIN HCL [Concomitant]
     Indication: DIABETES MELLITUS
     Route: 065
  7. DEPAKOTE SR [Concomitant]
     Indication: SCHIZOAFFECTIVE DISORDER
     Route: 065

REACTIONS (7)
  - BLOOD ALBUMIN ABNORMAL [None]
  - BLOOD GLUCOSE DECREASED [None]
  - BLOOD PRESSURE DECREASED [None]
  - HEART RATE DECREASED [None]
  - LYMPHOCYTE COUNT INCREASED [None]
  - THYROID FUNCTION TEST ABNORMAL [None]
  - VITAMIN B COMPLEX DEFICIENCY [None]
